FAERS Safety Report 15192941 (Version 1)
Quarter: 2018Q3

REPORT INFORMATION
  Report Type: Report from Study
  Country: ES (occurrence: ES)
  Receive Date: 20180725
  Receipt Date: 20180725
  Transmission Date: 20181010
  Serious: Yes (Hospitalization)
  Sender: FDA-Public Use
  Company Number: ES-TEVA-2018-ES-928202

PATIENT
  Age: 3 Year
  Sex: Male

DRUGS (9)
  1. DAUNORUBICINA HIDROCLORURO (177CH) [Suspect]
     Active Substance: DAUNORUBICIN HYDROCHLORIDE
     Indication: ACUTE LYMPHOCYTIC LEUKAEMIA
     Dosage: 16.2 MILLIGRAM DAILY;
     Route: 042
     Dates: start: 20170716, end: 20170716
  2. VINDESINA SULFATO (810SU) [Suspect]
     Active Substance: VINDESINE SULFATE
     Indication: ACUTE MYELOID LEUKAEMIA
     Route: 042
     Dates: start: 20170712, end: 20170717
  3. FOLINICO ACIDO (1587A) [Concomitant]
     Active Substance: LEUCOVORIN
     Indication: PROPHYLAXIS
     Dosage: 16.2 MILLIGRAM DAILY;
     Route: 042
     Dates: start: 20170714, end: 20170714
  4. ZOVIRAX  400 MG/5 ML SUSPENSION ORAL , 1 FRASCO DE 200 ML [Concomitant]
     Indication: OPPORTUNISTIC INFECTION PROPHYLAXIS
     Dosage: 360 MILLIGRAM DAILY;
     Route: 048
     Dates: start: 20170307
  5. DEXAMETASONA (722A) [Suspect]
     Active Substance: DEXAMETHASONE
     Indication: ACUTE LYMPHOCYTIC LEUKAEMIA
     Dosage: 10.8 MILLIGRAM DAILY;
     Route: 042
     Dates: start: 20170712, end: 20170717
  6. METOTREXATO (418A) [Suspect]
     Active Substance: METHOTREXATE
     Indication: ACUTE LYMPHOCYTIC LEUKAEMIA
     Dosage: 27 GRAM DAILY;
     Route: 042
     Dates: start: 20170712, end: 20170713
  7. IFOSFAMIDA (337A) [Suspect]
     Active Substance: IFOSFAMIDE
     Indication: ACUTE LYMPHOCYTIC LEUKAEMIA
     Route: 042
     Dates: start: 20170713, end: 20170715
  8. MESNA (1078A) [Concomitant]
     Active Substance: MESNA
     Indication: PROPHYLAXIS
     Route: 042
     Dates: start: 20170713, end: 20170715
  9. SEPTRIN PEDIATRICO 8 MG/40 MG/ML SUSPENSION ORAL , 1 FRASCO DE 100 ML [Concomitant]
     Active Substance: SULFAMETHOXAZOLE\TRIMETHOPRIM
     Indication: OPPORTUNISTIC INFECTION PROPHYLAXIS
     Dosage: 8 ML DAILY;
     Route: 048
     Dates: start: 20170307

REACTIONS (3)
  - Febrile neutropenia [Recovered/Resolved]
  - Device related infection [Recovered/Resolved]
  - Stomatitis [Recovered/Resolved]

NARRATIVE: CASE EVENT DATE: 20170718
